FAERS Safety Report 4398203-8 (Version None)
Quarter: 2004Q3

REPORT INFORMATION
  Report Type: 
  Country: None (occurrence: None)
  Receive Date: 20040714
  Receipt Date: 20040714
  Transmission Date: 20050211
  Serious: Yes (Hospitalization)
  Sender: FDA-Public Use
  Company Number: None

PATIENT
  Age: 74 Year
  Sex: Female
  Weight: 59.9 kg

DRUGS (14)
  1. LOVENOX [Suspect]
     Indication: ANTICOAGULANT THERAPY
     Dosage: 65 MG SQ BID
     Dates: start: 20040502, end: 20040509
  2. LOVENOX [Suspect]
     Indication: ATRIAL FIBRILLATION
     Dosage: 65 MG SQ BID
     Dates: start: 20040502, end: 20040509
  3. FOSAMAX [Concomitant]
  4. CALCIUM [Concomitant]
  5. DIGOXIN [Concomitant]
  6. COLACE [Concomitant]
  7. LASIX [Concomitant]
  8. LISINOPRIL [Concomitant]
  9. PROTONIX [Concomitant]
  10. SENOKOT [Concomitant]
  11. COMBIVENT MDI [Concomitant]
  12. ALPRAZOLAM [Concomitant]
  13. LEVOFLOXACIN [Concomitant]
  14. METOPROLOL TARTRATE [Concomitant]

REACTIONS (6)
  - ABDOMINAL PAIN LOWER [None]
  - FLANK PAIN [None]
  - GROIN PAIN [None]
  - HAEMATOCRIT DECREASED [None]
  - HAEMOGLOBIN DECREASED [None]
  - RETROPERITONEAL HAEMATOMA [None]
